FAERS Safety Report 8367526-X (Version None)
Quarter: 2012Q1

REPORT INFORMATION
  Report Type: 
  Country: None (occurrence: None)
  Receive Date: 20120323
  Receipt Date: 20111122
  Transmission Date: 20120608
  Serious: Yes (Other)
  Sender: FDA-Public Use
  Company Number: 163-21880-11111618

PATIENT
  Age: 93 Year
  Sex: Male

DRUGS (9)
  1. BACTRIM DS [Concomitant]
  2. PROMETHAZINE HCL [Concomitant]
  3. NEPHROCAPS (NEPHROCAPS) [Concomitant]
  4. OMEPRAZOLE [Concomitant]
  5. TOPROL-XL [Concomitant]
  6. CALCIUM CARBONATE [Concomitant]
  7. ACIDOPHILUS (LACTOBACILLUS ACIDOPHILUS) [Concomitant]
  8. REVLIMID [Suspect]
     Indication: MULTIPLE MYELOMA
     Dosage: 5 MG, X 21 CAPS, PO
     Route: 048
     Dates: start: 20111028
  9. ACYCLOVIR [Concomitant]

REACTIONS (3)
  - OEDEMA PERIPHERAL [None]
  - RESPIRATORY DISTRESS [None]
  - PNEUMONIA [None]
